FAERS Safety Report 19211515 (Version 1)
Quarter: 2021Q2

REPORT INFORMATION
  Report Type: Other
  Country: IN (occurrence: IN)
  Receive Date: 20210504
  Receipt Date: 20210504
  Transmission Date: 20210717
  Serious: Yes (Other)
  Sender: FDA-Public Use
  Company Number: IN-APRECIA PHARMACEUTICALS-APRE20210639

PATIENT
  Age: 62 Year
  Sex: Female
  Weight: 65 kg

DRUGS (1)
  1. LEVETIRACETAM. [Suspect]
     Active Substance: LEVETIRACETAM
     Indication: EPILEPSY
     Dosage: 500 MG
     Route: 048

REACTIONS (7)
  - Systemic lupus erythematosus rash [Recovered/Resolved]
  - Skin lesion [Recovered/Resolved]
  - Scar [Not Recovered/Not Resolved]
  - Rash [Recovered/Resolved]
  - Lupus-like syndrome [Recovered/Resolved]
  - Skin plaque [Recovered/Resolved]
  - Skin hypopigmentation [Recovered/Resolved]
